FAERS Safety Report 4394421-3 (Version None)
Quarter: 2004Q3

REPORT INFORMATION
  Report Type: 
  Country: None (occurrence: None)
  Receive Date: 20040706
  Receipt Date: 20040621
  Transmission Date: 20050211
  Serious: No
  Sender: FDA-Public Use
  Company Number: 04H-163-0264590-00

PATIENT
  Age: 3 Year
  Sex: Female

DRUGS (3)
  1. MEPERIDINE HCL INJECTION (MEPERIDINE HYDROCHLORIDE) (MEPERIDINE HYDROC [Suspect]
     Indication: SEDATION
     Dosage: 2 MG/KG
  2. MIDAZOLAM HYDROCHLORIDE [Suspect]
     Indication: SEDATION
     Dosage: 0.3 MG/KG
  3. KETAMINE HCL [Suspect]
     Indication: SEDATION
     Dosage: 0.8 MG/KG

REACTIONS (2)
  - ANAESTHETIC COMPLICATION [None]
  - SCREAMING [None]
